FAERS Safety Report 19777448 (Version 1)
Quarter: 2021Q3

REPORT INFORMATION
  Report Type: Report from Study
  Country: BR (occurrence: BR)
  Receive Date: 20210902
  Receipt Date: 20210902
  Transmission Date: 20211014
  Serious: Yes (Life-Threatening, Hospitalization, Other)
  Sender: FDA-Public Use
  Company Number: NVSC2021BR195262

PATIENT
  Age: 68 Year
  Sex: Female

DRUGS (8)
  1. KISQALI [Suspect]
     Active Substance: RIBOCICLIB
     Dosage: UNK
     Route: 065
     Dates: start: 20200925
  2. CELEBRA [Concomitant]
     Active Substance: CELECOXIB
     Indication: PRODUCT USED FOR UNKNOWN INDICATION
     Dosage: UNK
     Route: 065
     Dates: start: 202006
  3. LACRIMA PLUS (TEARS NATURALE II) [Suspect]
     Active Substance: DEXTRAN 70\HYPROMELLOSES
     Indication: DRY EYE
     Dosage: UNK
     Route: 065
  4. KISQALI [Suspect]
     Active Substance: RIBOCICLIB
     Indication: METASTASES TO LIVER
     Dosage: UNK
     Route: 065
     Dates: start: 20200925
  5. FASLODEX [Concomitant]
     Active Substance: FULVESTRANT
     Indication: PRODUCT USED FOR UNKNOWN INDICATION
     Dosage: UNK
     Route: 065
  6. FLANAX CAPS [Concomitant]
     Active Substance: NAPROXEN
     Indication: PRODUCT USED FOR UNKNOWN INDICATION
     Dosage: UNK
     Route: 065
     Dates: start: 20210522
  7. KISQALI [Suspect]
     Active Substance: RIBOCICLIB
     Dosage: UNK
     Route: 065
     Dates: start: 20200925
  8. KISQALI [Suspect]
     Active Substance: RIBOCICLIB
     Dosage: UNK
     Route: 065
     Dates: start: 20200925

REACTIONS (11)
  - Labyrinthitis [Unknown]
  - Eye pain [Unknown]
  - Oropharyngeal pain [Recovered/Resolved]
  - Alopecia [Unknown]
  - Abdominal pain upper [Recovered/Resolved]
  - Gingival pain [Unknown]
  - Volvulus [Unknown]
  - Musculoskeletal chest pain [Recovered/Resolved]
  - Injury [Recovered/Resolved]
  - Abdominal pain [Recovered/Resolved]
  - Dark circles under eyes [Unknown]

NARRATIVE: CASE EVENT DATE: 20210522
